FAERS Safety Report 9821981 (Version 2)
Quarter: 2014Q1

REPORT INFORMATION
  Report Type: Report from Study
  Country: US (occurrence: US)
  Receive Date: 20140116
  Receipt Date: 20140307
  Transmission Date: 20141002
  Serious: Yes (Other)
  Sender: FDA-Public Use
  Company Number: US-BAYER-2014-004487

PATIENT
  Age: 60 Year
  Sex: Female
  Weight: 57.5 kg

DRUGS (6)
  1. STIVARGA [Suspect]
     Indication: COLORECTAL CANCER
     Dosage: 160 MG DAILY
     Route: 048
     Dates: start: 201311, end: 20131231
  2. CARBAMAZEPINE [Concomitant]
  3. ELAVIL [Concomitant]
  4. LAMICTAL [Concomitant]
  5. HALDOL [Concomitant]
  6. LORAZEPAM [Concomitant]

REACTIONS (2)
  - Fatigue [None]
  - Confusional state [None]
